FAERS Safety Report 10519213 (Version 1)
Quarter: 2014Q4

REPORT INFORMATION
  Report Type: Spontaneous
  Country: DK (occurrence: FR)
  Receive Date: 20141015
  Receipt Date: 20141015
  Transmission Date: 20150528
  Serious: Yes (Congenital Anomaly)
  Sender: FDA-Public Use
  Company Number: FR-FRI-1000071544

PATIENT
  Sex: Female

DRUGS (26)
  1. MAGNE B6 [Concomitant]
     Active Substance: MAGNESIUM\PYRIDOXINE
     Dates: start: 20100730
  2. ZYMAD [Concomitant]
     Active Substance: CHOLECALCIFEROL
     Dates: start: 20100913
  3. DOLIPRANE [Concomitant]
     Active Substance: ACETAMINOPHEN
     Dates: start: 20110125
  4. ACIDE FOLIQUE [Concomitant]
     Active Substance: FOLIC ACID
     Dates: start: 20100910
  5. FIXICAL [Concomitant]
     Active Substance: CALCIUM CARBONATE
     Dates: start: 20100913
  6. METOCLOPRAMIDE. [Concomitant]
     Active Substance: METOCLOPRAMIDE
     Dates: start: 20100913
  7. DIPROSONE [Concomitant]
     Active Substance: BETAMETHASONE DIPROPIONATE
     Dates: start: 20101005
  8. BUDESONIDE. [Concomitant]
     Active Substance: BUDESONIDE
     Dates: start: 20110130
  9. BROMAZEPAM [Suspect]
     Active Substance: BROMAZEPAM
     Route: 064
     Dates: start: 20100922
  10. GLYCEROL\PARAFFIN [Concomitant]
     Active Substance: GLYCERIN\PARAFFIN
     Dates: start: 20100730
  11. FERROUS SULFATE [Concomitant]
     Active Substance: FERROUS SULFATE\FERROUS SULFATE, DRIED
     Dates: start: 20100913
  12. DOLIPRANE [Concomitant]
     Active Substance: ACETAMINOPHEN
     Dates: start: 20110210
  13. PIVALONE [Concomitant]
     Active Substance: TIXOCORTOL PIVALATE
     Dates: start: 20110125
  14. LAMOTRIGINE. [Suspect]
     Active Substance: LAMOTRIGINE
     Route: 064
     Dates: start: 201007, end: 201104
  15. HELICIDINE [Concomitant]
     Active Substance: ESCARGOT
     Dates: start: 20110125
  16. AMOXICILLINE [Concomitant]
     Active Substance: AMOXICILLIN
     Dates: start: 20110130
  17. PHYSIODOSE [Concomitant]
     Dates: start: 20110130
  18. VENTOLINE [Concomitant]
     Active Substance: ALBUTEROL
     Dates: start: 20110210
  19. GAVISCON [Concomitant]
     Active Substance: ALUMINUM HYDROXIDE\MAGNESIUM CARBONATE
     Dates: start: 20110305
  20. SPASFON [Concomitant]
     Active Substance: PHLOROGLUCINOL
     Dates: start: 20110218
  21. DOSISEPTINE [Concomitant]
     Dates: start: 20100928
  22. PIVALONE [Concomitant]
     Active Substance: TIXOCORTOL PIVALATE
     Dates: start: 20110210
  23. ECONAZOLE [Concomitant]
     Active Substance: ECONAZOLE
     Dates: start: 20110218
  24. ESCITALOPRAM [Suspect]
     Active Substance: ESCITALOPRAM OXALATE
     Route: 064
     Dates: start: 201007, end: 201104
  25. DOLIPRANE [Concomitant]
     Active Substance: ACETAMINOPHEN
     Dates: start: 20100928
  26. DOLIPRANE [Concomitant]
     Active Substance: ACETAMINOPHEN
     Dates: start: 20101217

REACTIONS (4)
  - Psychomotor retardation [Not Recovered/Not Resolved]
  - Congenital hand malformation [Not Recovered/Not Resolved]
  - Exposure during pregnancy [Not Recovered/Not Resolved]
  - Microcephaly [Not Recovered/Not Resolved]

NARRATIVE: CASE EVENT DATE: 2012
